FAERS Safety Report 7539280-2 (Version None)
Quarter: 2011Q2

REPORT INFORMATION
  Report Type: 
  Country: None (occurrence: None)
  Receive Date: 20110610
  Receipt Date: 20110531
  Transmission Date: 20111010
  Serious: Yes (Hospitalization, Other)
  Sender: FDA-Public Use
  Company Number: US-ELI_LILLY_AND_COMPANY-US201106000673

PATIENT
  Sex: Female

DRUGS (9)
  1. METFORMIN HYDROCHLORIDE [Concomitant]
     Indication: DIABETES MELLITUS
  2. NOVOLOG [Concomitant]
     Indication: DIABETES MELLITUS
     Dosage: 6 U, OTHER
  3. NORVASC [Concomitant]
     Dosage: UNK
  4. METOPROLOL SUCCINATE [Concomitant]
     Indication: BLOOD PRESSURE
     Dosage: 150 MG, QD
  5. PRANDIN [Concomitant]
     Indication: DIABETES MELLITUS
     Dosage: UNK
  6. BYETTA [Suspect]
     Dosage: 10 UG, BID
     Route: 058
  7. ACE INHIBITORS [Concomitant]
     Indication: BLOOD PRESSURE
  8. BYETTA [Suspect]
     Indication: TYPE 2 DIABETES MELLITUS
     Dosage: 5 UG, BID
     Route: 058
  9. LANTUS [Concomitant]
     Indication: DIABETES MELLITUS
     Dosage: 18 U, EACH EVENING

REACTIONS (3)
  - HOSPITALISATION [None]
  - OFF LABEL USE [None]
  - RENAL FAILURE [None]
